FAERS Safety Report 13531571 (Version 1)
Quarter: 2017Q2

REPORT INFORMATION
  Report Type: Spontaneous
  Country: CA (occurrence: CA)
  Receive Date: 20170510
  Receipt Date: 20170510
  Transmission Date: 20170830
  Serious: Yes (Hospitalization)
  Sender: FDA-Public Use
  Company Number: CA-JNJFOC-20170506331

PATIENT
  Sex: Male
  Weight: 113 kg

DRUGS (5)
  1. ERYTHROMYCIN LACTOBIONATE [Concomitant]
     Active Substance: ERYTHROMYCIN LACTOBIONATE
     Route: 042
  2. IMODIUM [Suspect]
     Active Substance: LOPERAMIDE HYDROCHLORIDE
     Route: 048
  3. ATROVENT [Concomitant]
     Active Substance: IPRATROPIUM BROMIDE
     Route: 055
  4. IMODIUM [Suspect]
     Active Substance: LOPERAMIDE HYDROCHLORIDE
     Indication: PRODUCT USED FOR UNKNOWN INDICATION
     Route: 048
  5. SALBUTAMOL [Concomitant]
     Active Substance: ALBUTEROL
     Route: 055

REACTIONS (4)
  - Paraesthesia mucosal [Recovered/Resolved]
  - Speech disorder [Recovered/Resolved]
  - Face oedema [Recovered/Resolved]
  - Dysphagia [Recovered/Resolved]
